FAERS Safety Report 25849996 (Version 1)
Quarter: 2025Q3

REPORT INFORMATION
  Report Type: Report from Study
  Country: CA (occurrence: CA)
  Receive Date: 20250926
  Receipt Date: 20250926
  Transmission Date: 20251021
  Serious: Yes (Other)
  Sender: TAKEDA
  Company Number: CA-TAKEDA-2025TUS042276

PATIENT
  Sex: Female

DRUGS (14)
  1. HUMAN IMMUNOGLOBULIN G [Suspect]
     Active Substance: HUMAN IMMUNOGLOBULIN G
     Indication: Secondary immunodeficiency
     Dosage: 5 GRAM, 1/WEEK
     Dates: start: 20250421
  2. HUMAN IMMUNOGLOBULIN G [Suspect]
     Active Substance: HUMAN IMMUNOGLOBULIN G
     Dosage: 5 GRAM, 1/WEEK
     Dates: start: 20250428
  3. HUMAN IMMUNOGLOBULIN G [Suspect]
     Active Substance: HUMAN IMMUNOGLOBULIN G
     Dosage: 5 GRAM, 1/WEEK
  4. HUMAN IMMUNOGLOBULIN G [Suspect]
     Active Substance: HUMAN IMMUNOGLOBULIN G
     Dosage: 5 GRAM, 1/WEEK
     Dates: start: 20250505
  5. HUMAN IMMUNOGLOBULIN G [Suspect]
     Active Substance: HUMAN IMMUNOGLOBULIN G
     Dosage: 5 GRAM, 1/WEEK
  6. HUMAN IMMUNOGLOBULIN G [Suspect]
     Active Substance: HUMAN IMMUNOGLOBULIN G
     Dosage: 5 GRAM, 1/WEEK
  7. HUMAN IMMUNOGLOBULIN G [Suspect]
     Active Substance: HUMAN IMMUNOGLOBULIN G
     Dosage: 5 GRAM, 1/WEEK
  8. HUMAN IMMUNOGLOBULIN G [Suspect]
     Active Substance: HUMAN IMMUNOGLOBULIN G
     Dosage: 5 GRAM, 1/WEEK
  9. AMLODIPINE\TELMISARTAN [Concomitant]
     Active Substance: AMLODIPINE\TELMISARTAN
  10. TRAMADOL [Concomitant]
     Active Substance: TRAMADOL
  11. ACYCLOVIR [Concomitant]
     Active Substance: ACYCLOVIR
  12. ONDANSETRON [Concomitant]
     Active Substance: ONDANSETRON
  13. TENOFOVIR [Concomitant]
     Active Substance: TENOFOVIR
     Dosage: 300 MILLIGRAM, QD
  14. APIXABAN [Concomitant]
     Active Substance: APIXABAN
     Dosage: 2.5 MILLIGRAM, QD

REACTIONS (19)
  - Myelodysplastic syndrome [Unknown]
  - Leukaemia [Unknown]
  - Lymphoma [Unknown]
  - Feeling abnormal [Unknown]
  - Pain [Unknown]
  - Myalgia [Unknown]
  - Nausea [Unknown]
  - Fatigue [Unknown]
  - Headache [Unknown]
  - Urinary tract infection [Not Recovered/Not Resolved]
  - Drug ineffective [Unknown]
  - Frustration tolerance decreased [Unknown]
  - Product administration interrupted [Unknown]
  - Infusion site haemorrhage [Unknown]
  - Infusion site discolouration [Not Recovered/Not Resolved]
  - Infusion site bruising [Not Recovered/Not Resolved]
  - Infusion site erythema [Unknown]
  - Infusion site pruritus [Unknown]
  - Malaise [Not Recovered/Not Resolved]
